FAERS Safety Report 6591197-6 (Version None)
Quarter: 2010Q1

REPORT INFORMATION
  Report Type: 
  Country: None (occurrence: None)
  Receive Date: 20100219
  Receipt Date: 20100208
  Transmission Date: 20100710
  Serious: Yes (Other)
  Sender: FDA-Public Use
  Company Number: PHEH2010US02192

PATIENT
  Sex: Male

DRUGS (1)
  1. RECLAST [Suspect]

REACTIONS (2)
  - ADVERSE DRUG REACTION [None]
  - MYOCARDIAL INFARCTION [None]
